FAERS Safety Report 23014259 (Version 1)
Quarter: 2023Q4

REPORT INFORMATION
  Report Type: Spontaneous
  Country: US (occurrence: US)
  Receive Date: 20231002
  Receipt Date: 20231002
  Transmission Date: 20240110
  Serious: No
  Sender: FDA-Public Use
  Company Number: US-TWI PHARMACEUTICAL, INC-2023SCTW000047

PATIENT

DRUGS (3)
  1. TESTOSTERONE [Suspect]
     Active Substance: TESTOSTERONE
     Indication: Blood testosterone decreased
     Dosage: 2 DOSAGE FORM, / DAY
     Route: 061
     Dates: start: 2019
  2. TESTOSTERONE [Suspect]
     Active Substance: TESTOSTERONE
     Dosage: 6 DOSAGE FORM, DAILY (6 PUMPS A DAY)
     Route: 061
     Dates: start: 20230731
  3. LANSOPRAZOLE [Concomitant]
     Active Substance: LANSOPRAZOLE
     Indication: Gastrooesophageal reflux disease
     Dosage: 15 MG, BID
     Route: 048

REACTIONS (4)
  - Blood testosterone decreased [None]
  - Incorrect dose administered [Unknown]
  - Wrong technique in product usage process [Unknown]
  - Drug ineffective [Unknown]

NARRATIVE: CASE EVENT DATE: 20230731
